FAERS Safety Report 4657865-8 (Version None)
Quarter: 2005Q2

REPORT INFORMATION
  Report Type: 
  Country: None (occurrence: None)
  Receive Date: 20050503
  Receipt Date: 20050125
  Transmission Date: 20051028
  Serious: No
  Sender: FDA-Public Use
  Company Number: RB-1288-2005

PATIENT
  Age: 44 Year
  Sex: Female

DRUGS (2)
  1. SUBUTEX [Suspect]
     Indication: PAIN
     Dosage: 4 MG DAILY
     Dates: start: 20041225, end: 20050125
  2. DILANTIN [Concomitant]

REACTIONS (1)
  - NAUSEA [None]
